FAERS Safety Report 6125193-X (Version None)
Quarter: 2009Q1

REPORT INFORMATION
  Report Type: 
  Country: None (occurrence: None)
  Receive Date: 20090317
  Receipt Date: 20090311
  Transmission Date: 20090719
  Serious: Yes (Other)
  Sender: FDA-Public Use
  Company Number: CHPA2009US06542

PATIENT
  Age: 47 Year
  Sex: Female

DRUGS (2)
  1. NICOTINE [Suspect]
     Indication: SMOKING CESSATION THERAPY
     Dosage: 7MG, 2 PATCHES AT ONCE; TRANSDERMAL; 7MG; TRANSDERMAL
     Route: 062
     Dates: start: 20080101, end: 20080101
  2. NICOTINE [Suspect]
     Indication: SMOKING CESSATION THERAPY
     Dosage: 7MG, 2 PATCHES AT ONCE; TRANSDERMAL; 7MG; TRANSDERMAL
     Route: 062
     Dates: start: 20090311

REACTIONS (2)
  - CHRONIC OBSTRUCTIVE PULMONARY DISEASE [None]
  - INCORRECT DOSE ADMINISTERED [None]
